FAERS Safety Report 6664610-3 (Version None)
Quarter: 2010Q1

REPORT INFORMATION
  Report Type: 
  Country: None (occurrence: None)
  Receive Date: 20100330
  Receipt Date: 20091216
  Transmission Date: 20100710
  Serious: Yes (Hospitalization)
  Sender: FDA-Public Use
  Company Number: 6056753

PATIENT
  Age: 38 Year
  Sex: Male

DRUGS (2)
  1. LEVOTHYROXINE SODIUM [Suspect]
     Indication: DRUG USE FOR UNKNOWN INDICATION
     Dosage: 1 DOSAGE FROMS (1 DOSGAE FORMS, 1 IN 1 D)
     Route: 048
     Dates: start: 20090801, end: 20090924
  2. LEVOTHYROXINE SODIUM [Suspect]
     Indication: DRUG USE FOR UNKNOWN INDICATION
     Dosage: 1 DOSAGE FROMS (1 DOSGAE FORMS, 1 IN 1 D)
     Route: 048
     Dates: start: 20090924, end: 20090929

REACTIONS (4)
  - ASTHENIA [None]
  - SUPRAVENTRICULAR EXTRASYSTOLES [None]
  - TACHYCARDIA [None]
  - VENTRICULAR EXTRASYSTOLES [None]
